FAERS Safety Report 23101104 (Version 1)
Quarter: 2023Q4

REPORT INFORMATION
  Report Type: Spontaneous
  Country: US (occurrence: None)
  Receive Date: 20231022
  Receipt Date: 20231022
  Transmission Date: 20240109
  Serious: Yes (Hospitalization)
  Sender: FDA-Public Use
  Company Number: None

PATIENT
  Age: 37 Year
  Sex: Male

DRUGS (1)
  1. ARIPIPRAZOLE [Suspect]
     Active Substance: ARIPIPRAZOLE
     Dates: start: 20210507, end: 20210513

REACTIONS (8)
  - Hypersensitivity pneumonitis [None]
  - Anxiety [None]
  - Pneumonia [None]
  - Hallucination, auditory [None]
  - Pathological doubt [None]
  - Hallucination, visual [None]
  - Paranoia [None]
  - Legionella infection [None]

NARRATIVE: CASE EVENT DATE: 20220513
